FAERS Safety Report 19442147 (Version 3)
Quarter: 2023Q2

REPORT INFORMATION
  Report Type: Report from Study
  Country: US (occurrence: US)
  Receive Date: 20210621
  Receipt Date: 20230417
  Transmission Date: 20230721
  Serious: Yes (Other)
  Sender: FDA-Public Use
  Company Number: US-PFIZER INC-2021681165

PATIENT
  Sex: Male
  Weight: 83.91 kg

DRUGS (2)
  1. ELETRIPTAN HYDROBROMIDE [Suspect]
     Active Substance: ELETRIPTAN HYDROBROMIDE
     Indication: Migraine
     Dosage: UNK (AS NEEDED ONCE A DAY)
     Route: 065
  2. ELETRIPTAN HYDROBROMIDE [Suspect]
     Active Substance: ELETRIPTAN HYDROBROMIDE
     Indication: Headache

REACTIONS (4)
  - Drug dependence [Unknown]
  - Headache [Recovered/Resolved]
  - Nausea [Unknown]
  - Drug ineffective [Unknown]
